FAERS Safety Report 4964852-9 (Version None)
Quarter: 2006Q2

REPORT INFORMATION
  Report Type: 
  Country: None (occurrence: None)
  Receive Date: 20060406
  Receipt Date: 20060327
  Transmission Date: 20061013
  Serious: Yes (Hospitalization, Other)
  Sender: FDA-Public Use
  Company Number: DE-BRISTOL-MYERS SQUIBB COMPANY-13330246

PATIENT
  Age: 48 Year
  Sex: Female
  Weight: 70 kg

DRUGS (8)
  1. TAXOL [Suspect]
     Indication: BREAST CANCER
     Route: 042
     Dates: start: 20060221, end: 20060221
  2. CAPECITABINE [Suspect]
     Indication: BREAST CANCER
     Route: 048
     Dates: start: 20060221
  3. DARBEPOETIN ALFA [Concomitant]
     Indication: BREAST CANCER
     Dates: start: 20060213
  4. CIPROBAY [Concomitant]
     Route: 048
     Dates: start: 20060221
  5. NEULASTA [Concomitant]
     Route: 058
     Dates: start: 20060302
  6. IRON SULFATETHIAMIN COMPOUND TAB [Concomitant]
     Dates: start: 20060221
  7. DEXAMETHASONE TAB [Concomitant]
     Dates: start: 20060221
  8. TROPISETRON [Concomitant]
     Dates: start: 20060221

REACTIONS (3)
  - ABDOMINAL PAIN UPPER [None]
  - DIARRHOEA [None]
  - OESOPHAGEAL PAIN [None]
